FAERS Safety Report 4281647-2 (Version None)
Quarter: 2004Q1

REPORT INFORMATION
  Report Type: 
  Country: None (occurrence: None)
  Receive Date: 20040128
  Receipt Date: 20040120
  Transmission Date: 20041129
  Serious: Yes (Hospitalization)
  Sender: FDA-Public Use
  Company Number: 200313854GDS

PATIENT
  Age: 17 Year
  Sex: Female

DRUGS (2)
  1. ASPIRIN [Suspect]
     Indication: NASOPHARYNGITIS
  2. COLD REMEDIES [Suspect]
     Indication: NASOPHARYNGITIS
     Dates: start: 20030616

REACTIONS (3)
  - EOSINOPHILIC PNEUMONIA ACUTE [None]
  - HYPOXIA [None]
  - LYMPHOCYTE STIMULATION TEST POSITIVE [None]
